FAERS Safety Report 9083862 (Version 2)
Quarter: 2013Q1

REPORT INFORMATION
  Report Type: Spontaneous
  Country: US (occurrence: US)
  Receive Date: 20130130
  Receipt Date: 20130213
  Transmission Date: 20140127
  Serious: Yes (Other)
  Sender: FDA-Public Use
  Company Number: US-PFIZER INC-2013037252

PATIENT
  Age: 66 Year
  Sex: Male
  Weight: 88.44 kg

DRUGS (1)
  1. NEURONTIN [Suspect]
     Indication: NEURALGIA
     Dosage: 800 MG, 2X/DAY
     Route: 048

REACTIONS (1)
  - Back disorder [Unknown]
